FAERS Safety Report 5303534-0 (Version None)
Quarter: 2007Q2

REPORT INFORMATION
  Report Type: 
  Country: None (occurrence: None)
  Receive Date: 20070420
  Receipt Date: 20070411
  Transmission Date: 20071010
  Serious: Yes (Other)
  Sender: FDA-Public Use
  Company Number: US-PFIZER INC-2007029653

PATIENT
  Sex: Female

DRUGS (2)
  1. BEXTRA [Suspect]
  2. VIOXX [Suspect]

REACTIONS (1)
  - CEREBROVASCULAR ACCIDENT [None]
